FAERS Safety Report 9412928 (Version 4)
Quarter: 2014Q1

REPORT INFORMATION
  Report Type: Spontaneous
  Country: US (occurrence: US)
  Receive Date: 20130722
  Receipt Date: 20140203
  Transmission Date: 20141002
  Serious: Yes (Hospitalization, Other)
  Sender: FDA-Public Use
  Company Number: US-BAYER-2013-086431

PATIENT
  Age: 74 Year
  Sex: Male

DRUGS (3)
  1. NEXAVAR [Suspect]
     Indication: ACUTE MYELOID LEUKAEMIA
     Dosage: STRENGTH/FORMULATION: 400MG, FREQUENCY: BID
     Route: 048
     Dates: start: 2011
  2. NEXAVAR [Suspect]
     Indication: ACUTE MYELOID LEUKAEMIA
     Dosage: STRENGTH/FORMULATION: 400MG, FREQUENCY: BID
     Route: 048
     Dates: start: 201110
  3. NEXAVAR [Suspect]
     Indication: ACUTE MYELOID LEUKAEMIA
     Dosage: UNK
     Route: 048
     Dates: end: 2013

REACTIONS (7)
  - Aphagia [None]
  - Abdominal pain upper [None]
  - Decreased appetite [None]
  - Off label use [None]
  - Oesophageal disorder [None]
  - Drug ineffective for unapproved indication [None]
  - Hospitalisation [None]
